FAERS Safety Report 9538601 (Version 1)
Quarter: 2013Q3

REPORT INFORMATION
  Report Type: Spontaneous
  Country: US (occurrence: US)
  Receive Date: 20130920
  Receipt Date: 20130920
  Transmission Date: 20140515
  Serious: No
  Sender: FDA-Public Use
  Company Number: US-PFIZER INC-2013269264

PATIENT
  Age: 7 Year
  Sex: Male
  Weight: 28.12 kg

DRUGS (1)
  1. CHILDRENS ADVIL [Suspect]
     Indication: OROPHARYNGEAL PAIN
     Dosage: UNK
     Dates: start: 20130917

REACTIONS (5)
  - Throat irritation [Unknown]
  - Chest discomfort [Unknown]
  - Feeling abnormal [Unknown]
  - Pain [Unknown]
  - Discomfort [Unknown]
